FAERS Safety Report 9887704 (Version 1)
Quarter: 2014Q1

REPORT INFORMATION
  Report Type: Report from Study
  Country: US (occurrence: US)
  Receive Date: 20140211
  Receipt Date: 20140211
  Transmission Date: 20141002
  Serious: Yes (Other)
  Sender: FDA-Public Use
  Company Number: US-ALEXION-A201304929

PATIENT
  Sex: Male

DRUGS (1)
  1. SOLIRIS [Suspect]
     Indication: HAEMOLYTIC URAEMIC SYNDROME

REACTIONS (8)
  - Haemodialysis [Unknown]
  - Microangiopathic haemolytic anaemia [Unknown]
  - Diabetes mellitus [Unknown]
  - Hypertension [Unknown]
  - Activities of daily living impaired [Unknown]
  - Quality of life decreased [Unknown]
  - Oedema [Unknown]
  - Fatigue [Unknown]
